FAERS Safety Report 8311216-6 (Version None)
Quarter: 2012Q2

REPORT INFORMATION
  Report Type: 
  Country: None (occurrence: None)
  Receive Date: 20120425
  Receipt Date: 20120416
  Transmission Date: 20120825
  Serious: Yes (Hospitalization)
  Sender: FDA-Public Use
  Company Number: ES-FRI-1000029990

PATIENT
  Age: 80 Year
  Sex: Female

DRUGS (10)
  1. JANUMET [Concomitant]
     Indication: TYPE 2 DIABETES MELLITUS
     Route: 048
     Dates: end: 20120320
  2. LORMETAZEPAM CINFA [Concomitant]
     Indication: INSOMNIA
     Dosage: 1 MG
     Route: 048
  3. OPTOVITE B12 [Concomitant]
     Indication: IRON DEFICIENCY ANAEMIA
     Dosage: 1 MG
     Route: 048
  4. AMLODIPINE BESYLATE AND OLMESARTAN MEDOXOMIL [Suspect]
     Indication: HYPERTENSION
     Dosage: 1 FD
     Dates: start: 20120101, end: 20120320
  5. LOPID [Concomitant]
     Indication: HYPERLIPIDAEMIA
     Dosage: 900 MG
     Route: 048
  6. SINTROM [Concomitant]
     Indication: ATRIAL FIBRILLATION
     Dosage: 20 MG
     Route: 048
  7. DIGOXIN [Suspect]
     Indication: ATRIAL FIBRILLATION
     Route: 048
     Dates: start: 20070101, end: 20120320
  8. NEBIVOLOL [Suspect]
     Indication: HYPERTENSION
     Dosage: 5 MG
     Route: 048
     Dates: start: 20070101, end: 20120320
  9. PARACETAMOL [Concomitant]
     Indication: PAIN
     Dosage: 650 MG
     Route: 048
  10. FERROUS SULFATE TAB [Concomitant]
     Indication: IRON DEFICIENCY ANAEMIA
     Dosage: 80 MG
     Route: 048

REACTIONS (3)
  - TOXICITY TO VARIOUS AGENTS [None]
  - DRUG INTERACTION [None]
  - BRADYCARDIA [None]
